FAERS Safety Report 4705380-5 (Version None)
Quarter: 2005Q2

REPORT INFORMATION
  Report Type: 
  Country: None (occurrence: None)
  Receive Date: 20050629
  Receipt Date: 20050324
  Transmission Date: 20051028
  Serious: Yes (Life-Threatening, Other)
  Sender: FDA-Public Use
  Company Number: 200213705GDDC

PATIENT
  Age: 50 Year
  Sex: Female

DRUGS (17)
  1. CYCLOPHOSPHAMIDE [Suspect]
     Indication: BREAST CANCER
     Dosage: 600 MG/M**2 Q3W IV
     Route: 042
     Dates: start: 20000523, end: 20000725
  2. CYCLOPHOSPHAMIDE [Suspect]
     Indication: BREAST CANCER
     Dosage: 100 MG/M**2 CYC PO
     Route: 048
     Dates: start: 20000815
  3. DOXORUBICIN HCL [Suspect]
     Indication: BREAST CANCER
     Dosage: 60 MG/M**2 Q3W IV
     Route: 042
     Dates: start: 20000523, end: 20000725
  4. METHOTREXATE [Suspect]
     Indication: BREAST CANCER
     Dosage: 40 MG/M**2 CYC IV
     Route: 042
     Dates: start: 20000815, end: 20001017
  5. FLUOROURACIL [Suspect]
     Indication: BREAST CANCER
     Dosage: 600 MG/M**2 CYC IV
     Route: 042
     Dates: start: 20000815, end: 20001017
  6. TAMOXIFEN CITRATE [Suspect]
     Indication: BREAST CANCER
     Dosage: 20 MG/DAY PO
     Route: 048
     Dates: start: 20020207, end: 20020430
  7. RADIOTHERAPY [Suspect]
     Indication: BREAST CANCER
     Dates: start: 20001115, end: 20001219
  8. RADIOTHERAPY [Suspect]
     Indication: BREAST CANCER
     Dates: start: 20001220, end: 20001228
  9. CEPHALEXIN [Concomitant]
  10. DEXAMETHASONE [Concomitant]
  11. PULMICORT [Concomitant]
  12. RANI 2 [Concomitant]
  13. ZANTAC [Concomitant]
  14. MAXOLON [Concomitant]
  15. ASMOL [Concomitant]
  16. VENTOLIN [Concomitant]
  17. NAVOBAN [Concomitant]

REACTIONS (7)
  - ACUTE MONOCYTIC LEUKAEMIA [None]
  - ACUTE MYELOID LEUKAEMIA [None]
  - BACK PAIN [None]
  - CONDITION AGGRAVATED [None]
  - CONTUSION [None]
  - PAIN IN EXTREMITY [None]
  - RECTAL HAEMORRHAGE [None]
